FAERS Safety Report 8313381-3 (Version None)
Quarter: 2012Q2

REPORT INFORMATION
  Report Type: 
  Country: None (occurrence: None)
  Receive Date: 20120426
  Receipt Date: 20120420
  Transmission Date: 20120825
  Serious: Yes (Disabling)
  Sender: FDA-Public Use
  Company Number: PHFR2012GB002472

PATIENT
  Age: 49 Year
  Sex: Female

DRUGS (2)
  1. ZOLEDRONIC [Suspect]
     Indication: BREAST CANCER
     Dosage: UNK
     Route: 042
  2. TAMOXIFEN CITRATE [Concomitant]
     Dosage: UNK
     Route: 048

REACTIONS (1)
  - OSTEONECROSIS OF JAW [None]
